FAERS Safety Report 21011038 (Version 1)
Quarter: 2022Q2

REPORT INFORMATION
  Report Type: Spontaneous
  Country: CN (occurrence: CN)
  Receive Date: 20220627
  Receipt Date: 20220627
  Transmission Date: 20220720
  Serious: Yes (Other)
  Sender: FDA-Public Use
  Company Number: CN-PFIZER INC-PV202200008555

PATIENT
  Age: 19 Day
  Sex: Male
  Weight: 3.28 kg

DRUGS (1)
  1. ZITHROMAX [Suspect]
     Active Substance: AZITHROMYCIN DIHYDRATE
     Indication: Neonatal pneumonia
     Dosage: 33 MG, 1X/DAY
     Route: 048
     Dates: start: 20220615, end: 20220616

REACTIONS (2)
  - Rash neonatal [Recovered/Resolved]
  - Erythema [Recovered/Resolved]

NARRATIVE: CASE EVENT DATE: 20220616
